FAERS Safety Report 12877955 (Version 1)
Quarter: 2016Q4

REPORT INFORMATION
  Report Type: Spontaneous
  Country: US (occurrence: US)
  Receive Date: 20161024
  Receipt Date: 20161024
  Transmission Date: 20170207
  Serious: Yes (Other)
  Sender: FDA-Public Use
  Company Number: US-TEVA-703542USA

PATIENT
  Age: 72 Year
  Sex: Female

DRUGS (2)
  1. NORVASC [Concomitant]
     Active Substance: AMLODIPINE BESYLATE
     Indication: HYPERTENSION
  2. CLOPIDOGREL [Suspect]
     Active Substance: CLOPIDOGREL BISULFATE
     Indication: TRANSIENT ISCHAEMIC ATTACK
     Route: 048
     Dates: start: 201609

REACTIONS (6)
  - Dyspepsia [Not Recovered/Not Resolved]
  - Pain [Unknown]
  - Rash [Recovered/Resolved]
  - Abdominal pain upper [Unknown]
  - Faeces discoloured [Unknown]
  - Gastric disorder [Unknown]

NARRATIVE: CASE EVENT DATE: 201609
